FAERS Safety Report 12656931 (Version 1)
Quarter: 2016Q3

REPORT INFORMATION
  Report Type: Spontaneous
  Country: IT (occurrence: FR)
  Receive Date: 20160816
  Receipt Date: 20160816
  Transmission Date: 20161109
  Serious: Yes (Life-Threatening, Hospitalization)
  Sender: FDA-Public Use
  Company Number: IT-SIGMA-TAU US-2016STPI000607

PATIENT
  Age: 66 Year
  Sex: Male

DRUGS (17)
  1. ADCETRIS [Suspect]
     Active Substance: BRENTUXIMAB VEDOTIN
     Indication: T-CELL LYMPHOMA
     Dosage: UNK UNK, Q2W
     Route: 042
     Dates: start: 20160517, end: 20160517
  2. OFLOXACIN 1 A PHARMA [Concomitant]
     Indication: PYREXIA
     Dosage: UNK
     Dates: start: 20160517, end: 20160523
  3. TRIFLUCAN [Concomitant]
     Active Substance: FLUCONAZOLE
     Indication: FUNGAL INFECTION
     Dosage: UNK
     Dates: start: 20160527, end: 20160604
  4. ZOVIRAX [Concomitant]
     Active Substance: ACYCLOVIR
     Indication: FUNGAL INFECTION
     Dosage: UNK
     Dates: start: 20160527, end: 20160604
  5. MATULANE [Suspect]
     Active Substance: PROCARBAZINE HYDROCHLORIDE
     Indication: T-CELL LYMPHOMA
     Dosage: UNK, Q2W
     Dates: start: 20160517, end: 20160517
  6. VELBE [Suspect]
     Active Substance: VINBLASTINE SULFATE
     Indication: T-CELL LYMPHOMA
     Dosage: UNK, Q2W
     Route: 042
     Dates: start: 20160517, end: 20160517
  7. AUGMENTIN [Concomitant]
     Active Substance: AMOXICILLIN\CLAVULANATE POTASSIUM
     Indication: PYREXIA
     Dosage: UNK
     Route: 065
     Dates: start: 20160517, end: 20160523
  8. TAZOCILLINE [Concomitant]
     Active Substance: PIPERACILLIN SODIUM\TAZOBACTAM SODIUM
     Indication: BRONCHOPNEUMOPATHY
     Dosage: UNK
     Dates: start: 20160523
  9. ADCETRIS [Suspect]
     Active Substance: BRENTUXIMAB VEDOTIN
     Dosage: UNK UNK, Q2W
     Route: 042
     Dates: start: 20160604, end: 20160604
  10. VELBE [Suspect]
     Active Substance: VINBLASTINE SULFATE
     Dosage: UNK, Q2W
     Route: 042
     Dates: start: 20160604, end: 20160604
  11. TEICOPLANIN [Concomitant]
     Active Substance: TEICOPLANIN
     Indication: PRODUCT USED FOR UNKNOWN INDICATION
  12. AMIKACIN [Concomitant]
     Active Substance: AMIKACIN
     Indication: BRONCHOPNEUMOPATHY
     Dosage: UNK
     Dates: start: 20160523, end: 20160526
  13. CIPROFLOXACIN. [Concomitant]
     Active Substance: CIPROFLOXACIN
     Indication: PYREXIA
     Dosage: UNK
     Route: 042
     Dates: start: 20160526
  14. TIENAM [Concomitant]
     Active Substance: CILASTATIN SODIUM\IMIPENEM
     Indication: FUNGAL INFECTION
     Dosage: UNK
     Dates: start: 20160527, end: 20160530
  15. AZTREONAM. [Concomitant]
     Active Substance: AZTREONAM
     Indication: PRODUCT USED FOR UNKNOWN INDICATION
     Dosage: UNK
     Route: 065
     Dates: start: 2016
  16. MATULANE [Suspect]
     Active Substance: PROCARBAZINE HYDROCHLORIDE
     Dosage: UNK, Q2W
     Dates: start: 20160604, end: 20160604
  17. VANCOMYCIN [Concomitant]
     Active Substance: VANCOMYCIN
     Indication: PYREXIA
     Dosage: UNK, Q2W
     Route: 042
     Dates: start: 20160526

REACTIONS (5)
  - Rash maculo-papular [Recovering/Resolving]
  - Bronchopneumopathy [Unknown]
  - Stevens-Johnson syndrome [Recovering/Resolving]
  - Fungal infection [Unknown]
  - Febrile neutropenia [Unknown]

NARRATIVE: CASE EVENT DATE: 20160523
